FAERS Safety Report 12212406 (Version 1)
Quarter: 2016Q1

REPORT INFORMATION
  Report Type: Spontaneous
  Country: US (occurrence: US)
  Receive Date: 20160326
  Receipt Date: 20160326
  Transmission Date: 20160526
  Serious: No
  Sender: FDA-Public Use
  Company Number: US-009507513-1603USA000980

PATIENT
  Age: 60 Year
  Sex: Female

DRUGS (1)
  1. TEMODAR [Suspect]
     Active Substance: TEMOZOLOMIDE
     Indication: SMALL CELL LUNG CANCER
     Dosage: ONE TABLET DAILY FOR SEVEN(7) DAYS, AND THEN TWENTY-ONE(21) DAYS OFF
     Route: 048
     Dates: start: 201602

REACTIONS (2)
  - Rash [Not Recovered/Not Resolved]
  - Drug administration error [Unknown]

NARRATIVE: CASE EVENT DATE: 201602
